FAERS Safety Report 8553833 (Version 2)
Quarter: 2012Q4

REPORT INFORMATION
  Report Type: Report from Study
  Country: IT (occurrence: IT)
  Receive Date: 20120509
  Receipt Date: 20121228
  Transmission Date: 20130627
  Serious: No
  Sender: FDA-Public Use
  Company Number: IT-ROCHE-1065645

PATIENT
  Age: 67 Year
  Sex: Female

DRUGS (4)
  1. BEVACIZUMAB [Suspect]
     Indication: RECTAL CANCER
     Route: 065
     Dates: start: 20090701, end: 20090701
  2. DEXAMETHASONE [Concomitant]
     Route: 042
     Dates: start: 20090701, end: 20090701
  3. OMEPRAZOLE [Concomitant]
     Route: 042
     Dates: start: 20090701, end: 20090701
  4. 5-FLUOROURACIL [Concomitant]
     Route: 042
     Dates: start: 20090630, end: 20090701

REACTIONS (1)
  - Hypertensive crisis [Unknown]
